FAERS Safety Report 8756153 (Version 2)
Quarter: 2012Q4

REPORT INFORMATION
  Report Type: 
  Country: US (occurrence: None)
  Receive Date: 20120816
  Receipt Date: 20120824
  Transmission Date: 20130627
  Serious: Yes (Death)
  Sender: FDA-Public Use
  Company Number: DKLU1083709

PATIENT
  Age: 10 Year
  Sex: Male

DRUGS (9)
  1. PREDNISONE (PREDNISONE) [Concomitant]
  2. NEURONTIN [Concomitant]
  3. DILANTIN (PHENYTOIN SODIUM) [Concomitant]
  4. PHENOBARBITAL [Concomitant]
  5. ADDERALL (OBETROL /01345401/) (TABLET) [Concomitant]
  6. ZANTAC [Concomitant]
  7. MVI (VITAMINS NOS) (TABLET) [Concomitant]
  8. TOPAMAX [Concomitant]
  9. SABRIL [Suspect]

REACTIONS (1)
  - Death [None]
